FAERS Safety Report 6750234-6 (Version None)
Quarter: 2010Q2

REPORT INFORMATION
  Report Type: 
  Country: None (occurrence: None)
  Receive Date: 20100601
  Receipt Date: 20100511
  Transmission Date: 20101027
  Serious: Yes (Other)
  Sender: FDA-Public Use
  Company Number: US-ASTRAZENECA-2010SE21844

PATIENT
  Sex: Female

DRUGS (6)
  1. NEXIUM [Suspect]
     Indication: GASTROOESOPHAGEAL REFLUX DISEASE
     Route: 048
  2. ZOFRAN [Concomitant]
     Dosage: THREE TIMES A DAY - TOTAL DAILY DOSE: 8 MG.
     Route: 065
  3. LIPITOR [Concomitant]
     Route: 065
  4. EVISTA [Concomitant]
     Route: 065
  5. EMEND [Concomitant]
     Route: 065
  6. ZEBETA [Concomitant]
     Route: 065

REACTIONS (1)
  - OVARIAN CANCER [None]
